FAERS Safety Report 4330899-9 (Version None)
Quarter: 2004Q1

REPORT INFORMATION
  Report Type: 
  Country: None (occurrence: None)
  Receive Date: 20040331
  Receipt Date: 20040316
  Transmission Date: 20041129
  Serious: Yes (Other)
  Sender: FDA-Public Use
  Company Number: USA040362204

PATIENT
  Age: 73 Year
  Sex: Female

DRUGS (2)
  1. EVISTA [Suspect]
     Indication: BONE DISORDER
     Dates: start: 20000101
  2. FORTEO [Suspect]
     Indication: OSTEOPOROSIS
     Dates: start: 20040219

REACTIONS (5)
  - FALL [None]
  - FRACTURE [None]
  - PHARMACEUTICAL PRODUCT COMPLAINT [None]
  - STOMATITIS [None]
  - WRIST FRACTURE [None]
